FAERS Safety Report 6770976-6 (Version None)
Quarter: 2010Q2

REPORT INFORMATION
  Report Type: 
  Country: None (occurrence: None)
  Receive Date: 20100616
  Receipt Date: 20100607
  Transmission Date: 20101027
  Serious: No
  Sender: FDA-Public Use
  Company Number: US-BIOGENIDEC-2010BI019312

PATIENT
  Age: 55 Year
  Sex: Female

DRUGS (7)
  1. TYSABRI [Suspect]
     Indication: MULTIPLE SCLEROSIS
     Route: 042
     Dates: start: 20091013
  2. SYNTHROID [Concomitant]
     Indication: HYPOTHYROIDISM
  3. SIMVASTATIN [Concomitant]
     Indication: BLOOD TRIGLYCERIDES INCREASED
  4. ARICEPT [Concomitant]
     Indication: COGNITIVE DISORDER
  5. ANTIDEPRESSANT (NOS) [Concomitant]
     Indication: DEPRESSION
  6. ANTIDEPRESSANT (NOS) [Concomitant]
  7. IBUPROFEN [Concomitant]
     Indication: SCIATICA

REACTIONS (4)
  - COGNITIVE DISORDER [None]
  - FATIGUE [None]
  - MULTIPLE SCLEROSIS [None]
  - STRESS [None]
